FAERS Safety Report 9164918 (Version 2)
Quarter: 2013Q1

REPORT INFORMATION
  Report Type: Spontaneous
  Country: CL (occurrence: CL)
  Receive Date: 20130315
  Receipt Date: 20130325
  Transmission Date: 20140127
  Serious: Yes (Other)
  Sender: FDA-Public Use
  Company Number: CL-PFIZER INC-2013084656

PATIENT
  Age: 82 Year
  Sex: Male

DRUGS (7)
  1. AZULFIDINE [Suspect]
     Indication: CROHN^S DISEASE
     Dosage: 1 DF, 2X/DAY
     Route: 048
     Dates: start: 1983
  2. CARVEDILOL [Concomitant]
     Indication: HYPERTENSION
     Dosage: 25 MG, 2X/DAY
  3. DIGOXINA [Concomitant]
     Dosage: 0.25 DF, ALTERNATE DAY
  4. EUTIROX [Concomitant]
     Indication: HYPOTHYROIDISM
     Dosage: 100 UG, 1X/DAY
  5. SPIRONOLACTONE [Concomitant]
     Dosage: 25 MG, 1X/DAY
  6. PYRIDOSTIGMINE [Concomitant]
     Indication: MYASTHENIA GRAVIS
     Dosage: 30 MG, 2X/DAY
  7. SECOTEX [Concomitant]
     Indication: BENIGN PROSTATIC HYPERPLASIA
     Dosage: 0.4 MG, 1X/DAY

REACTIONS (4)
  - Coronary artery occlusion [Not Recovered/Not Resolved]
  - Myasthenia gravis [Not Recovered/Not Resolved]
  - Hypothyroidism [Not Recovered/Not Resolved]
  - Benign prostatic hyperplasia [Not Recovered/Not Resolved]
